FAERS Safety Report 19021095 (Version 28)
Quarter: 2023Q1

REPORT INFORMATION
  Report Type: Report from Study
  Country: CL (occurrence: CL)
  Receive Date: 20210317
  Receipt Date: 20230317
  Transmission Date: 20230418
  Serious: Yes (Hospitalization, Other)
  Sender: FDA-Public Use
  Company Number: NVSC2020CL335709

PATIENT
  Age: 64 Year
  Sex: Male

DRUGS (22)
  1. SANDOSTATIN LAR DEPOT [Suspect]
     Active Substance: OCTREOTIDE ACETATE
     Indication: Acromegaly
     Dosage: 20 MG, QMO
     Route: 030
     Dates: start: 2017
  2. SANDOSTATIN LAR DEPOT [Suspect]
     Active Substance: OCTREOTIDE ACETATE
     Dosage: 20 MG, QMO
     Route: 030
     Dates: start: 20170601
  3. SANDOSTATIN LAR DEPOT [Suspect]
     Active Substance: OCTREOTIDE ACETATE
     Dosage: 20 MG, EVERY 35 DAYS
     Route: 030
     Dates: start: 20170601
  4. SANDOSTATIN LAR DEPOT [Suspect]
     Active Substance: OCTREOTIDE ACETATE
     Dosage: 20 MG (EVERY 45 DAYS)
     Route: 030
  5. SANDOSTATIN LAR DEPOT [Suspect]
     Active Substance: OCTREOTIDE ACETATE
     Dosage: 20 MG (EVERY 43 DAYS)
     Route: 030
     Dates: start: 20170601
  6. SANDOSTATIN LAR DEPOT [Suspect]
     Active Substance: OCTREOTIDE ACETATE
     Dosage: 20 MG (EVERY 58 DAYS)
     Route: 030
     Dates: start: 20170601
  7. TRILEPTAL [Suspect]
     Active Substance: OXCARBAZEPINE
     Indication: Product used for unknown indication
     Dosage: 600 MG, BID
     Route: 065
  8. VALPROIC ACID [Suspect]
     Active Substance: VALPROIC ACID
     Indication: Epilepsy
     Dosage: 800 MG, BID (800 MG IN THE MORNING AND 800 IN THE AFTERNOON)
     Route: 065
  9. VALPROIC ACID [Suspect]
     Active Substance: VALPROIC ACID
     Dosage: UNK
     Route: 065
  10. CORTISOL [Concomitant]
     Active Substance: HYDROCORTISONE
     Indication: Product used for unknown indication
     Dosage: UNK (20 MG AM AND 10 MG PM)
     Route: 065
  11. LEVOTHYROXINE [Concomitant]
     Active Substance: LEVOTHYROXINE
     Indication: Product used for unknown indication
     Dosage: 250 MG (100 MCG 16 TABLETS EVERY 7 DAYS VIA TAKE 2 TABLET FROM MONDAY TO THURSDAY AND 250 MG FRIDAY,
     Route: 065
  12. LEVOTHYROXINE [Concomitant]
     Active Substance: LEVOTHYROXINE
     Dosage: 200 MG (FROM MONDAY TO THURSDAY)
     Route: 065
  13. LEVOTHYROXINE [Concomitant]
     Active Substance: LEVOTHYROXINE
     Dosage: 250 MG (FROM FRIDAY TO SUNDAY)
     Route: 065
  14. RISPERIDONE [Concomitant]
     Active Substance: RISPERIDONE
     Indication: Product used for unknown indication
     Dosage: UNK
     Route: 065
  15. RISPERIDONE [Concomitant]
     Active Substance: RISPERIDONE
     Dosage: UNK (1.5 MG AT NIGHT)
     Route: 065
  16. ATORVASTATIN [Concomitant]
     Active Substance: ATORVASTATIN
     Indication: Product used for unknown indication
     Dosage: UNK
     Route: 065
  17. ATORVASTATIN [Concomitant]
     Active Substance: ATORVASTATIN
     Dosage: UNK (10 MG AT NIGHT)
     Route: 065
  18. ASPIRIN [Concomitant]
     Active Substance: ASPIRIN
     Indication: Product used for unknown indication
     Dosage: 100 MG, QD
     Route: 065
  19. HYDROCORTISONE [Concomitant]
     Active Substance: HYDROCORTISONE
     Indication: Product used for unknown indication
     Dosage: 150 MG, QD  (100 MG IN THE MORNING AND 50 MG IN THE AFTERNOON)
     Route: 065
  20. HYDROCORTISONE [Concomitant]
     Active Substance: HYDROCORTISONE
     Dosage: 20 MG (1.5 EVERY 24 HOURS)
     Route: 048
  21. METFORMIN [Concomitant]
     Active Substance: METFORMIN HYDROCHLORIDE
     Indication: Product used for unknown indication
     Dosage: UNK (850 AT LUNCH TIME)
     Route: 065
  22. LEVETIRACETAM [Concomitant]
     Active Substance: LEVETIRACETAM
     Indication: Product used for unknown indication
     Dosage: 1000 MG, BID
     Route: 065
     Dates: start: 20211230

REACTIONS (29)
  - Skin hypertrophy [Unknown]
  - Epilepsy [Unknown]
  - Malaise [Unknown]
  - Immunodeficiency [Unknown]
  - Injection site pain [Unknown]
  - Injection site haemorrhage [Unknown]
  - Bacterial test positive [Unknown]
  - Pyrexia [Unknown]
  - Toxicity to various agents [Unknown]
  - Infection [Unknown]
  - Cerebrovascular accident [Unknown]
  - Seizure [Unknown]
  - Unresponsive to stimuli [Unknown]
  - Ill-defined disorder [Unknown]
  - Urinary incontinence [Unknown]
  - Musculoskeletal stiffness [Unknown]
  - Confusional state [Unknown]
  - Gait inability [Unknown]
  - Abnormal faeces [Unknown]
  - Muscle rigidity [Unknown]
  - Tremor [Unknown]
  - Somnolence [Unknown]
  - Disorientation [Unknown]
  - General physical health deterioration [Unknown]
  - Pituitary tumour benign [Unknown]
  - COVID-19 [Unknown]
  - Product supply issue [Unknown]
  - Product dose omission issue [Unknown]
  - Inappropriate schedule of product administration [Unknown]

NARRATIVE: CASE EVENT DATE: 20170601
